FAERS Safety Report 4308347-4 (Version None)
Quarter: 2004Q1

REPORT INFORMATION
  Report Type: 
  Country: None (occurrence: None)
  Receive Date: 20040301
  Receipt Date: 20031229
  Transmission Date: 20041129
  Serious: Yes (Hospitalization)
  Sender: FDA-Public Use
  Company Number: 200320764US

PATIENT
  Sex: Female
  Weight: 56.8 kg

DRUGS (4)
  1. AMARYL [Suspect]
     Indication: DIABETES MELLITUS NON-INSULIN-DEPENDENT
     Dosage: DOSE: UNK
     Route: 048
  2. GLUCOPHAGE [Concomitant]
     Indication: DIABETES MELLITUS NON-INSULIN-DEPENDENT
     Dosage: DOSE: 500 (4 TABLETS)
     Route: 048
  3. PREMARIN [Concomitant]
     Indication: HOT FLUSH
     Route: 048
  4. PROVERA [Concomitant]
     Indication: HOT FLUSH
     Route: 048

REACTIONS (7)
  - CONVULSION [None]
  - DIZZINESS [None]
  - FALL [None]
  - HUNGER [None]
  - LOSS OF CONSCIOUSNESS [None]
  - TREMOR [None]
  - WEIGHT INCREASED [None]
